FAERS Safety Report 9322568 (Version 2)
Quarter: 2013Q2

REPORT INFORMATION
  Report Type: Spontaneous
  Country: US (occurrence: US)
  Receive Date: 20130531
  Receipt Date: 20130604
  Transmission Date: 20140414
  Serious: Yes (Other)
  Sender: FDA-Public Use
  Company Number: US-PFIZER INC-2013165153

PATIENT
  Age: 69 Year
  Sex: Male
  Weight: 74.83 kg

DRUGS (4)
  1. CELEBREX [Suspect]
     Indication: ARTHRALGIA
     Dosage: 100 MG, 1X/DAY
     Route: 048
     Dates: end: 20130523
  2. CELEBREX [Suspect]
     Dosage: 200 MG, 1X/DAY
     Route: 048
     Dates: start: 20130523, end: 20130526
  3. VICODIN [Concomitant]
     Indication: PAIN
     Dosage: UNK
  4. NEURONTIN [Concomitant]
     Indication: PAIN
     Dosage: UNK

REACTIONS (4)
  - Hypoacusis [Unknown]
  - Feeling abnormal [Unknown]
  - Anger [Unknown]
  - Inappropriate schedule of drug administration [Unknown]
